FAERS Safety Report 24568355 (Version 1)
Quarter: 2024Q4

REPORT INFORMATION
  Report Type: Spontaneous
  Country: CA (occurrence: CA)
  Receive Date: 20241031
  Receipt Date: 20241031
  Transmission Date: 20250115
  Serious: Yes (Hospitalization, Other)
  Sender: MIRUM PHARMACEUTICALS
  Company Number: CA-MIRUM PHARMACEUTICALS, INC.-CA-MIR-24-00948

PATIENT

DRUGS (1)
  1. LIVMARLI [Suspect]
     Active Substance: MARALIXIBAT CHLORIDE
     Indication: Cholestasis of pregnancy
     Dosage: 0.48 MILLILITER, QD
     Route: 064
     Dates: start: 20241010, end: 20241013

REACTIONS (5)
  - Jaundice neonatal [Recovered/Resolved]
  - Poor feeding infant [Unknown]
  - Premature baby [Recovered/Resolved]
  - Intensive care [Not Recovered/Not Resolved]
  - Foetal exposure during pregnancy [Unknown]

NARRATIVE: CASE EVENT DATE: 20241001
